FAERS Safety Report 4602495-7 (Version None)
Quarter: 2005Q1

REPORT INFORMATION
  Report Type: 
  Country: None (occurrence: None)
  Receive Date: 20050307
  Receipt Date: 20050121
  Transmission Date: 20050727
  Serious: Yes (Hospitalization, Other)
  Sender: FDA-Public Use
  Company Number: 2005018142

PATIENT
  Age: 57 Year
  Sex: Female

DRUGS (10)
  1. NEURONTIN [Suspect]
     Indication: TRIGEMINAL NEURALGIA
     Dosage: (600 MG) ORAL
     Route: 048
     Dates: end: 20050121
  2. OXYCODONE HYDROCHLORIDE (OXYCODONE HYDROCHLORIDE) [Concomitant]
  3. LANSOPRAZOLE [Concomitant]
  4. LIBRAX [Concomitant]
  5. PROVELLA-14 (ESTROGENS CONJUGATED, MEDROXYPROGESTERONE ACETATE) [Concomitant]
  6. ZOLPIDEM TARTRATE [Concomitant]
  7. PROCHLORPERAZINE EDISYLATE [Concomitant]
  8. ONDANSETRON HCL [Concomitant]
  9. OXCARBAZEPINE (OXCARBAZEPINE) [Concomitant]
  10. VICODIN [Concomitant]

REACTIONS (13)
  - ANGER [None]
  - BRUXISM [None]
  - DISEASE RECURRENCE [None]
  - INFLUENZA [None]
  - IRRITABILITY [None]
  - IRRITABLE BOWEL SYNDROME [None]
  - MOOD ALTERED [None]
  - MUSCLE SPASMS [None]
  - NAUSEA [None]
  - PAIN [None]
  - PAIN IN EXTREMITY [None]
  - PHARMACEUTICAL PRODUCT COMPLAINT [None]
  - TRIGEMINAL NEURALGIA [None]
